FAERS Safety Report 23989424 (Version 2)
Quarter: 2024Q4

REPORT INFORMATION
  Report Type: Spontaneous
  Country: US (occurrence: US)
  Receive Date: 20240619
  Receipt Date: 20241205
  Transmission Date: 20250114
  Serious: Yes (Hospitalization, Other)
  Sender: AUROBINDO
  Company Number: US-MLMSERVICE-20240405-PI015115-00153-1

PATIENT
  Age: 68 Year
  Sex: Male

DRUGS (5)
  1. FLUOXETINE [Interacting]
     Active Substance: FLUOXETINE HYDROCHLORIDE
     Indication: Major depression
     Dosage: 80 MILLIGRAM
     Route: 065
     Dates: end: 2023
  2. FLUOXETINE [Interacting]
     Active Substance: FLUOXETINE HYDROCHLORIDE
     Indication: Pain
  3. BUPROPION\DEXTROMETHORPHAN [Interacting]
     Active Substance: BUPROPION\DEXTROMETHORPHAN
     Indication: Depressive symptom
     Dosage: 1 DOSAGE FORM, ONCE A DAY
     Route: 065
     Dates: start: 202308, end: 2023
  4. BUPROPION\DEXTROMETHORPHAN [Interacting]
     Active Substance: BUPROPION\DEXTROMETHORPHAN
     Dosage: 105/45MG DAILY
     Route: 065
  5. PRAZOSIN [Concomitant]
     Active Substance: PRAZOSIN
     Indication: Major depression
     Dosage: 5 MILLIGRAM, ONCE A DAY
     Route: 065

REACTIONS (3)
  - Toxicity to various agents [Recovering/Resolving]
  - Serotonin syndrome [Recovering/Resolving]
  - Drug interaction [Recovering/Resolving]

NARRATIVE: CASE EVENT DATE: 20230101
